FAERS Safety Report 5391768-9 (Version None)
Quarter: 2007Q3

REPORT INFORMATION
  Report Type: 
  Country: None (occurrence: None)
  Receive Date: 20070717
  Receipt Date: 20070705
  Transmission Date: 20080115
  Serious: Yes (Other)
  Sender: FDA-Public Use
  Company Number: 16917

PATIENT
  Age: 9 Year
  Sex: Male

DRUGS (10)
  1. CARBOPLATIN [Suspect]
  2. VINCRISTINE [Suspect]
  3. ETOPOSIDE [Suspect]
  4. CISPLATIN [Suspect]
  5. CLONAZEPAM [Concomitant]
  6. VALPROIC ACID [Concomitant]
  7. PIPERACILLIN [Concomitant]
  8. ISEPAMICIN [Concomitant]
  9. TOPIRAMATE [Concomitant]
  10. ANTIBIOTICS [Concomitant]

REACTIONS (11)
  - ABDOMINAL DISTENSION [None]
  - ABDOMINAL RIGIDITY [None]
  - CAECITIS [None]
  - COLONIC PSEUDO-OBSTRUCTION [None]
  - CONSTIPATION [None]
  - ILEUS [None]
  - ORAL INTAKE REDUCED [None]
  - PANCYTOPENIA [None]
  - PSEUDOMEMBRANOUS COLITIS [None]
  - PYREXIA [None]
  - VOMITING [None]
